FAERS Safety Report 9817039 (Version 1)
Quarter: 2014Q1

REPORT INFORMATION
  Report Type: Spontaneous
  Country: US (occurrence: US)
  Receive Date: 20140114
  Receipt Date: 20140114
  Transmission Date: 20141002
  Serious: No
  Sender: FDA-Public Use
  Company Number: US-BIOGENIDEC-2014BI000238

PATIENT
  Sex: Female

DRUGS (12)
  1. TECFIDERA [Suspect]
     Indication: MULTIPLE SCLEROSIS
     Route: 048
     Dates: start: 20130831, end: 20130906
  2. TECFIDERA [Suspect]
     Indication: MULTIPLE SCLEROSIS
     Route: 048
     Dates: start: 20130907
  3. PAROXETINE [Concomitant]
  4. PANTOPRAZOLE [Concomitant]
  5. MIRTAZAPINE [Concomitant]
  6. OMEGA 3 [Concomitant]
  7. COLACE [Concomitant]
  8. VICODIN [Concomitant]
  9. LYRICA [Concomitant]
  10. ALLEGRA [Concomitant]
  11. MIDOL [Concomitant]
  12. ATIVAN [Concomitant]

REACTIONS (1)
  - Malaise [Recovered/Resolved]
